FAERS Safety Report 17053811 (Version 3)
Quarter: 2019Q4

REPORT INFORMATION
  Report Type: Spontaneous
  Country: GR (occurrence: GR)
  Receive Date: 20191120
  Receipt Date: 20191231
  Transmission Date: 20200122
  Serious: Yes (Other)
  Sender: FDA-Public Use
  Company Number: GR-INCYTE CORPORATION-2019IN011381

PATIENT

DRUGS (1)
  1. JAKAVI [Suspect]
     Active Substance: RUXOLITINIB
     Indication: MYELOFIBROSIS
     Dosage: 30 MG (15MGX2)
     Route: 065
     Dates: start: 201609, end: 201909

REACTIONS (6)
  - Abdominal pain [Unknown]
  - Second primary malignancy [Unknown]
  - Pancytopenia [Unknown]
  - Haemoglobin decreased [Unknown]
  - Non-Hodgkin^s lymphoma [Unknown]
  - Splenomegaly [Unknown]

NARRATIVE: CASE EVENT DATE: 201908
